FAERS Safety Report 10265331 (Version 2)
Quarter: 2014Q3

REPORT INFORMATION
  Report Type: Spontaneous
  Country: FR (occurrence: FR)
  Receive Date: 20140627
  Receipt Date: 20140922
  Transmission Date: 20150326
  Serious: Yes (Other)
  Sender: FDA-Public Use
  Company Number: FR-JNJFOC-20140614902

PATIENT
  Age: 88 Year
  Sex: Female
  Weight: 45 kg

DRUGS (7)
  1. CEFTRIAXONE. [Concomitant]
     Active Substance: CEFTRIAXONE
     Route: 058
     Dates: start: 20140527, end: 20140604
  2. NORSET [Concomitant]
     Active Substance: MIRTAZAPINE
     Route: 048
     Dates: start: 201310
  3. INEXIUM [Concomitant]
     Active Substance: ESOMEPRAZOLE
     Route: 048
     Dates: start: 20140527
  4. XARELTO [Suspect]
     Active Substance: RIVAROXABAN
     Indication: EMBOLISM VENOUS
     Route: 048
     Dates: start: 20140524, end: 20140620
  5. FUMAFER [Concomitant]
     Active Substance: FERROUS FUMARATE
     Route: 048
     Dates: start: 20140527
  6. XARELTO [Suspect]
     Active Substance: RIVAROXABAN
     Indication: PULMONARY EMBOLISM
     Route: 048
     Dates: start: 20140524, end: 20140620
  7. OROKEN [Concomitant]
     Active Substance: CEFIXIME
     Route: 048
     Dates: start: 20140605, end: 20140620

REACTIONS (3)
  - Pyelonephritis acute [Unknown]
  - Deep vein thrombosis [Recovering/Resolving]
  - Drug ineffective [Unknown]

NARRATIVE: CASE EVENT DATE: 201405
